FAERS Safety Report 15600607 (Version 3)
Quarter: 2018Q4

REPORT INFORMATION
  Report Type: Spontaneous
  Country: NL (occurrence: NL)
  Receive Date: 20181109
  Receipt Date: 20181224
  Transmission Date: 20190205
  Serious: Yes (Hospitalization)
  Sender: FDA-Public Use
  Company Number: NL-ACTELION-A-CH2018-181399

PATIENT
  Age: 84 Year
  Sex: Female

DRUGS (9)
  1. OXYCODON [Concomitant]
     Active Substance: OXYCODONE
  2. MEBEVERINE [Concomitant]
     Active Substance: MEBEVERINE
  3. TERIPARATIDE [Concomitant]
     Active Substance: TERIPARATIDE
  4. TRACLEER [Suspect]
     Active Substance: BOSENTAN
     Indication: PULMONARY HYPERTENSION
     Dosage: 125 MG, BID
     Route: 048
  5. DOMPERIDON [Concomitant]
     Active Substance: DOMPERIDONE
  6. LORATADINE. [Concomitant]
     Active Substance: LORATADINE
  7. VALSARTAN. [Concomitant]
     Active Substance: VALSARTAN
  8. CLOPIDOGREL [Concomitant]
     Active Substance: CLOPIDOGREL BISULFATE
  9. FUROSEMIDE. [Concomitant]
     Active Substance: FUROSEMIDE

REACTIONS (1)
  - Spinal fracture [Recovered/Resolved with Sequelae]
